FAERS Safety Report 17393255 (Version 8)
Quarter: 2023Q1

REPORT INFORMATION
  Report Type: Report from Study
  Country: FR (occurrence: FR)
  Receive Date: 20200207
  Receipt Date: 20230131
  Transmission Date: 20230418
  Serious: Yes (Death, Other)
  Sender: FDA-Public Use
  Company Number: FR-ABBVIE-20K-056-3266285-00

PATIENT
  Age: 83 Year
  Sex: Female
  Weight: 56 kg

DRUGS (18)
  1. VENETOCLAX [Suspect]
     Active Substance: VENETOCLAX
     Indication: Chronic lymphocytic leukaemia
     Dosage: 50 MILLIGRAM
     Route: 048
     Dates: start: 20191113, end: 20191119
  2. VENETOCLAX [Suspect]
     Active Substance: VENETOCLAX
     Indication: Chronic lymphocytic leukaemia
     Dosage: 100 MILLIGRAM
     Route: 048
     Dates: start: 20191120, end: 20191126
  3. VENETOCLAX [Suspect]
     Active Substance: VENETOCLAX
     Indication: Chronic lymphocytic leukaemia
     Dosage: 200 MILLIGRAM
     Route: 048
     Dates: start: 20191127, end: 20200129
  4. FASTURTEC [Concomitant]
     Active Substance: RASBURICASE
     Indication: Blood uric acid increased
     Dates: start: 20191105, end: 20191105
  5. NITROFURANTOIN [Concomitant]
     Active Substance: NITROFURANTOIN
     Indication: Escherichia urinary tract infection
     Dates: start: 20191205, end: 20191205
  6. PRIMPERAN [Concomitant]
     Active Substance: METOCLOPRAMIDE HYDROCHLORIDE
     Indication: Prophylaxis of nausea and vomiting
     Dates: start: 20191105, end: 20200130
  7. ALLOPURINOL [Concomitant]
     Active Substance: ALLOPURINOL
     Indication: Hypouricaemia
     Dates: start: 20191119, end: 20200130
  8. FILGRASTIM [Concomitant]
     Active Substance: FILGRASTIM
     Indication: Neutropenia
     Dates: start: 20191119, end: 20200130
  9. CLODRONIC ACID [Concomitant]
     Active Substance: CLODRONIC ACID
     Indication: Prophylaxis
     Dates: start: 20191014, end: 20200130
  10. VALACYCLOVIR HYDROCHLORIDE [Concomitant]
     Active Substance: VALACYCLOVIR HYDROCHLORIDE
     Indication: Antiviral treatment
  11. PANTOPRAZOLE [Concomitant]
     Active Substance: PANTOPRAZOLE
     Indication: Gastrin secretion disorder
     Dates: start: 20191014, end: 20191217
  12. FILGRASTIM [Concomitant]
     Active Substance: FILGRASTIM
     Indication: Product used for unknown indication
     Dates: start: 20191014, end: 20200130
  13. ERYTHROPOIETIN [Concomitant]
     Active Substance: ERYTHROPOIETIN
     Indication: Myelosuppression
     Dates: start: 20191127, end: 20200130
  14. POLYETHYLENE GLYCOLS [Concomitant]
     Active Substance: POLYETHYLENE GLYCOLS
     Indication: Laxative supportive care
     Dates: start: 20191014, end: 20200130
  15. ACETAMINOPHEN [Concomitant]
     Active Substance: ACETAMINOPHEN
     Indication: Pain
     Dates: start: 20191014, end: 20200130
  16. BIMATOPROST\TIMOLOL [Concomitant]
     Active Substance: BIMATOPROST\TIMOLOL
     Indication: Eye disorder prophylaxis
     Dates: start: 20191127, end: 20200130
  17. REFRESH CELLUVISC [Concomitant]
     Active Substance: CARBOXYMETHYLCELLULOSE SODIUM
     Indication: Lacrimal disorder
     Dates: start: 20191127, end: 20200130
  18. VITAMIN A [Concomitant]
     Active Substance: VITAMIN A
     Indication: Ophthalmologic treatment
     Dates: start: 20191127, end: 20200130

REACTIONS (20)
  - Breast cancer metastatic [Fatal]
  - Thrombocytopenia [Fatal]
  - Night sweats [Recovered/Resolved]
  - Confusional state [Unknown]
  - Night sweats [Unknown]
  - Pancytopenia [Not Recovered/Not Resolved]
  - Thrombocytopenia [Not Recovered/Not Resolved]
  - Epistaxis [Recovered/Resolved]
  - Presyncope [Recovered/Resolved]
  - Hypercalcaemia [Recovered/Resolved]
  - Gingival bleeding [Recovered/Resolved]
  - Pseudomonas infection [Unknown]
  - Escherichia urinary tract infection [Recovered/Resolved]
  - Hyperuricaemia [Recovered/Resolved]
  - Hypocalcaemia [Not Recovered/Not Resolved]
  - Nausea [Recovered/Resolved]
  - Neutropenia [Recovered/Resolved]
  - Escherichia urinary tract infection [Recovered/Resolved]
  - Hypocalcaemia [Unknown]
  - Hyperkalaemia [Recovered/Resolved]

NARRATIVE: CASE EVENT DATE: 20191101
